FAERS Safety Report 8811168 (Version 2)
Quarter: 2013Q2

REPORT INFORMATION
  Report Type: Spontaneous
  Country: US (occurrence: None)
  Receive Date: 20120924
  Receipt Date: 20130521
  Transmission Date: 20140414
  Serious: Yes (Other)
  Sender: FDA-Public Use
  Company Number: KAD201209-000436

PATIENT
  Age: 57 Year
  Sex: Male
  Weight: 112.5 kg

DRUGS (6)
  1. RIBAVIRIN [Suspect]
     Indication: HEPATITIS C
     Dosage: INITIAL DOSE: 1400 MG, ORAL
     Route: 048
     Dates: start: 201204
  2. PEGASYS (PEGINTERFERON ALFA-2A) [Suspect]
     Indication: HEPATITIS C
     Route: 058
     Dates: start: 201204
  3. VICTRELIS [Suspect]
     Indication: HEPATITIS C
     Dates: start: 20110511
  4. ALLOPURINOL [Concomitant]
  5. TRIAMTERENE [Concomitant]
  6. LISINOPRIL [Concomitant]

REACTIONS (8)
  - Swelling face [None]
  - Eye swelling [None]
  - Weight increased [None]
  - Fluid retention [None]
  - Rash [None]
  - Leukopenia [None]
  - Drug eruption [None]
  - Oedema [None]
